FAERS Safety Report 6331760-0 (Version None)
Quarter: 2009Q3

REPORT INFORMATION
  Report Type: 
  Country: None (occurrence: None)
  Receive Date: 20090826
  Receipt Date: 20090817
  Transmission Date: 20100115
  Serious: Yes (Other)
  Sender: FDA-Public Use
  Company Number: 232028K09USA

PATIENT
  Age: 45 Year
  Sex: Female

DRUGS (3)
  1. REBIF [Suspect]
     Indication: MULTIPLE SCLEROSIS
     Dosage: 44 MCG, 3 IN 1 WEEKS, SUBCUTANEOUS
     Route: 058
     Dates: start: 20070808
  2. BLOOD PRESSURE PILLS (ANTIHYPERTENSIVES) [Concomitant]
  3. THYROID PILLS (THYROID THERAPY) [Concomitant]

REACTIONS (1)
  - BREAST CANCER [None]
